FAERS Safety Report 4364540-6 (Version None)
Quarter: 2004Q2

REPORT INFORMATION
  Report Type: 
  Country: None (occurrence: None)
  Receive Date: 20040519
  Receipt Date: 20040504
  Transmission Date: 20050107
  Serious: Yes (Hospitalization)
  Sender: FDA-Public Use
  Company Number: 2004-IT-00076IT

PATIENT
  Age: 82 Year
  Sex: Female

DRUGS (3)
  1. MICARDIS [Suspect]
     Dosage: 40 MG ; PO
     Route: 048
     Dates: start: 20040302, end: 20040414
  2. NOLVADEX (TAMOXIFEN CITRATE) (NR) [Concomitant]
  3. LASIX [Concomitant]

REACTIONS (7)
  - ANGIONEUROTIC OEDEMA [None]
  - BLOOD CREATININE INCREASED [None]
  - CHRONIC OBSTRUCTIVE AIRWAYS DISEASE EXACERBATED [None]
  - DERMATITIS EXFOLIATIVE [None]
  - PRURITUS [None]
  - PULMONARY FIBROSIS [None]
  - RESPIRATORY FAILURE [None]
